FAERS Safety Report 4724737-X (Version None)
Quarter: 2005Q3

REPORT INFORMATION
  Report Type: 
  Country: None (occurrence: None)
  Receive Date: 20050726
  Receipt Date: 20050627
  Transmission Date: 20060218
  Serious: Yes (Other)
  Sender: FDA-Public Use
  Company Number: US-GLAXOSMITHKLINE-A0564303A

PATIENT
  Age: 8 Month
  Sex: Female

DRUGS (2)
  1. ZANTAC [Suspect]
     Indication: GASTROOESOPHAGEAL REFLUX DISEASE
     Dosage: .5TSP THREE TIMES PER DAY
     Route: 048
     Dates: start: 20050501, end: 20050625
  2. NO CONCURRENT MEDICATION [Concomitant]

REACTIONS (7)
  - DRUG DISPENSING ERROR [None]
  - EYE MOVEMENT DISORDER [None]
  - INSOMNIA [None]
  - MEDICATION ERROR [None]
  - OVERDOSE [None]
  - SCREAMING [None]
  - TREMOR [None]
